FAERS Safety Report 12395618 (Version 1)
Quarter: 2016Q2

REPORT INFORMATION
  Report Type: Spontaneous
  Country: GB (occurrence: GB)
  Receive Date: 20160523
  Receipt Date: 20160523
  Transmission Date: 20160815
  Serious: Yes (Other)
  Sender: FDA-Public Use
  Company Number: GB-TEVA-660537ACC

PATIENT
  Age: 28 Year
  Sex: Female
  Weight: 124 kg

DRUGS (8)
  1. ZOPICLONE [Concomitant]
     Active Substance: ZOPICLONE
     Indication: SLEEP DISORDER
     Dosage: 1 DOSAGE FORMS DAILY; AT NIGHT ONLY IF NEEDED
     Dates: start: 20160408, end: 20160415
  2. BENZYDAMINE HYDROCHLORIDE [Concomitant]
     Active Substance: BENZYDAMINE HYDROCHLORIDE
     Dosage: RINSE OR GARGLE WITH 15ML EVERY 3 HOURS AS NEEDED
     Dates: start: 20160427, end: 20160428
  3. SALBUTAMOL [Concomitant]
     Active Substance: ALBUTEROL
     Dosage: USE TWO PUFFS AS NEEDED AS RELIEVER INHALER
     Route: 055
     Dates: start: 20150818
  4. PROPRANOLOL [Concomitant]
     Active Substance: PROPRANOLOL\PROPRANOLOL HYDROCHLORIDE
     Indication: ANXIETY
     Dosage: 3 DOSAGE FORMS DAILY; IF NEEDED
     Dates: start: 20160224, end: 20160304
  5. SERTRALINE [Suspect]
     Active Substance: SERTRALINE HYDROCHLORIDE
     Dates: start: 20160503
  6. FLUOXETINE [Concomitant]
     Active Substance: FLUOXETINE HYDROCHLORIDE
     Dosage: 2 DOSAGE FORMS DAILY; EACH MORNING
     Dates: start: 20150818, end: 20160317
  7. CETIRIZINE [Concomitant]
     Active Substance: CETIRIZINE HYDROCHLORIDE
     Dosage: 1 DOSAGE FORMS DAILY; EACH MORNING WHEN NEEDED
     Dates: start: 20160427
  8. DOUBLEBASE [Concomitant]
     Active Substance: ISOPROPYL MYRISTATE\PARAFFIN
     Dosage: USE AS SOAP AND MOISTURISER AS NEEDED
     Dates: start: 20160427

REACTIONS (3)
  - Lip blister [Recovering/Resolving]
  - Dermatitis bullous [Recovering/Resolving]
  - Blister [Recovering/Resolving]

NARRATIVE: CASE EVENT DATE: 20160503
